FAERS Safety Report 20091320 (Version 2)
Quarter: 2021Q4

REPORT INFORMATION
  Report Type: Spontaneous
  Country: BR (occurrence: BR)
  Receive Date: 20211119
  Receipt Date: 20211222
  Transmission Date: 20220304
  Serious: Yes (Other)
  Sender: FDA-Public Use
  Company Number: BR-ABBOTT-2021A-1342198

PATIENT
  Sex: Male
  Weight: 84 kg

DRUGS (3)
  1. SYNTHROID [Suspect]
     Active Substance: LEVOTHYROXINE SODIUM
     Indication: Supplementation therapy
     Dosage: DAILY DOSE: 100 MICROGRAM, 1 IN 1 DAY, ALWAYS TOOK IN FASTING
     Route: 048
  2. PANTOPRAZOLE [Concomitant]
     Active Substance: PANTOPRAZOLE
     Indication: Antacid therapy
     Dosage: AFTER SYNTHROID
  3. PANTOPRAZOLE [Concomitant]
     Active Substance: PANTOPRAZOLE
     Dosage: AFTER PHYSICIAN APPOINTMENT, RECOMMENDED TO TAKE AROUND 30 MIN BEFORE SYNTHROID

REACTIONS (4)
  - Prostate cancer [Recovered/Resolved]
  - Gallbladder operation [Unknown]
  - Cholelithiasis [Recovered/Resolved]
  - Pain [Recovered/Resolved]
